APPROVED DRUG PRODUCT: BIKTARVY
Active Ingredient: BICTEGRAVIR SODIUM; EMTRICITABINE; TENOFOVIR ALAFENAMIDE FUMARATE
Strength: EQ 50MG BASE;200MG;EQ 25MG BASE
Dosage Form/Route: TABLET;ORAL
Application: N210251 | Product #001
Applicant: GILEAD SCIENCES INC
Approved: Feb 7, 2018 | RLD: Yes | RS: Yes | Type: RX

PATENTS:
Patent 9296769 | Expires: Aug 15, 2032
Patent 8754065 | Expires: Aug 15, 2032
Patent 10385067 | Expires: Jun 19, 2035
Patent 11744802 | Expires: Nov 8, 2036
Patent 9732092 | Expires: Dec 19, 2033
Patent 10548846 | Expires: Nov 8, 2036
Patent 9216996 | Expires: Dec 19, 2033
Patent 9708342 | Expires: Jun 19, 2035
Patent 9296769*PED | Expires: Feb 15, 2033
Patent 8754065*PED | Expires: Feb 15, 2033

EXCLUSIVITY:
Code: I-942 | Date: Feb 23, 2027
Code: M-305 | Date: Apr 24, 2027
Code: ODE-256 | Date: Jun 18, 2026
Code: ODE-468 | Date: Feb 23, 2031